FAERS Safety Report 14477630 (Version 1)
Quarter: 2018Q1

REPORT INFORMATION
  Report Type: Report from Study
  Country: US (occurrence: US)
  Receive Date: 20180201
  Receipt Date: 20180201
  Transmission Date: 20180509
  Serious: No
  Sender: FDA-Public Use
  Company Number: US-EXELIXIS-CABO-17011014

PATIENT
  Age: 65 Year
  Sex: Male

DRUGS (10)
  1. TURMERIC [Concomitant]
     Active Substance: HERBALS\TURMERIC
  2. VITAMIN B [Concomitant]
     Active Substance: VITAMIN B
  3. VITAMIN C [Concomitant]
     Active Substance: ASCORBIC ACID
  4. FISH OIL [Concomitant]
     Active Substance: FISH OIL
  5. VITAMIN B12 [Concomitant]
     Active Substance: CYANOCOBALAMIN
  6. LISINOPRIL. [Concomitant]
     Active Substance: LISINOPRIL
  7. VITAMIN D [Concomitant]
     Active Substance: CHOLECALCIFEROL
  8. MAGNESIUM [Concomitant]
     Active Substance: MAGNESIUM
  9. COMETRIQ [Suspect]
     Active Substance: CABOZANTINIB S-MALATE
     Indication: THYROID CANCER
     Dosage: 140 MG, QD
     Route: 048
     Dates: start: 20170921
  10. SYNTHROID [Concomitant]
     Active Substance: LEVOTHYROXINE SODIUM

REACTIONS (15)
  - Pyrexia [Unknown]
  - Hypertension [Not Recovered/Not Resolved]
  - Erythema [Unknown]
  - Lip dry [Unknown]
  - Arthralgia [Unknown]
  - Diarrhoea [Unknown]
  - Skin discolouration [Unknown]
  - Alopecia [Not Recovered/Not Resolved]
  - Flushing [Unknown]
  - Hair colour changes [Not Recovered/Not Resolved]
  - Dry skin [Unknown]
  - Arthritis [Unknown]
  - Pain in extremity [Not Recovered/Not Resolved]
  - Oral pain [Unknown]
  - Stomatitis [Unknown]

NARRATIVE: CASE EVENT DATE: 201712
